FAERS Safety Report 8236027-1 (Version None)
Quarter: 2012Q1

REPORT INFORMATION
  Report Type: 
  Country: None (occurrence: None)
  Receive Date: 20120326
  Receipt Date: 20120319
  Transmission Date: 20120608
  Serious: Yes (Other)
  Sender: FDA-Public Use
  Company Number: US-BAYER-2012-026892

PATIENT
  Age: 65 Year
  Sex: Female
  Weight: 85 kg

DRUGS (8)
  1. PROTONIX [Suspect]
     Indication: HIATUS HERNIA
     Dosage: DAILY DOSE 40 MG
  2. PROTONIX [Suspect]
     Indication: GASTROOESOPHAGEAL REFLUX DISEASE
  3. WARFARIN SODIUM [Concomitant]
     Indication: ANTICOAGULANT THERAPY
     Dosage: 5 MG, UNK
  4. PROCARDIA XL [Concomitant]
     Indication: HYPERTENSION
     Dosage: UNK
  5. ASPIRIN [Suspect]
     Indication: PRODUCT USED FOR UNKNOWN INDICATION
     Dosage: UNK
  6. PRAVASTATIN [Concomitant]
     Indication: BLOOD CHOLESTEROL INCREASED
     Dosage: 40 MG, UNK
  7. DIOVAN [Concomitant]
     Indication: HYPERTENSION
     Dosage: 160 MG, UNK
  8. SYNTHROID [Concomitant]
     Indication: THYROID DISORDER
     Dosage: 150 ?G, UNK

REACTIONS (2)
  - GASTRIC HAEMORRHAGE [None]
  - CARDIAC OPERATION [None]
